FAERS Safety Report 18044534 (Version 1)
Quarter: 2020Q3

REPORT INFORMATION
  Report Type: Spontaneous
  Country: US (occurrence: US)
  Receive Date: 20200720
  Receipt Date: 20200720
  Transmission Date: 20201103
  Serious: No
  Sender: FDA-Public Use
  Company Number: None

PATIENT
  Age: 59 Year
  Sex: Male
  Weight: 90 kg

DRUGS (1)
  1. PREGNYL [Suspect]
     Active Substance: CHORIOGONADOTROPIN ALFA
     Indication: BLOOD TESTOSTERONE DECREASED
     Dosage: ?          OTHER FREQUENCY:ONCE A WEEK;OTHER ROUTE:INJECTED INTO SKIN?
     Dates: start: 20190722, end: 20200720

REACTIONS (4)
  - Injection site swelling [None]
  - Injection site rash [None]
  - Product reconstitution quality issue [None]
  - Injection site urticaria [None]

NARRATIVE: CASE EVENT DATE: 20200501
